FAERS Safety Report 8785001 (Version 1)
Quarter: 2012Q4

REPORT INFORMATION
  Report Type: 
  Country: ES (occurrence: ES)
  Receive Date: 20120914
  Receipt Date: 20120914
  Transmission Date: 20130627
  Serious: Yes (Other)
  Sender: FDA-Public Use
  Company Number: ES-JNJFOC-20120904960

PATIENT
  Age: 54 Year
  Sex: Male
  Weight: 101 kg

DRUGS (8)
  1. REMICADE [Suspect]
     Indication: PSORIATIC ARTHROPATHY
     Route: 042
     Dates: start: 200604
  2. REMICADE [Suspect]
     Indication: PSORIASIS
     Route: 042
     Dates: start: 200604
  3. METFORMIN AND SITAGLIPTIN [Concomitant]
     Route: 065
  4. METHOTREXATE [Concomitant]
     Indication: PSORIATIC ARTHROPATHY
     Route: 065
  5. METHOTREXATE [Concomitant]
     Indication: PSORIASIS
     Route: 065
  6. PITAVASTATIN [Concomitant]
     Route: 065
  7. TELMISARTAN [Concomitant]
     Route: 065
  8. OMEGA 3 ACID ETHYL ESTERS [Concomitant]
     Route: 065

REACTIONS (1)
  - Dermatitis exfoliative [Recovered/Resolved]
